FAERS Safety Report 8291193-7 (Version None)
Quarter: 2012Q2

REPORT INFORMATION
  Report Type: 
  Country: None (occurrence: None)
  Receive Date: 20120417
  Receipt Date: 20120403
  Transmission Date: 20120825
  Serious: Yes (Other)
  Sender: FDA-Public Use
  Company Number: DE-MYLANLABS-2012S1007373

PATIENT
  Age: 3 Day
  Sex: Male

DRUGS (2)
  1. LAMOTRGINE [Suspect]
     Indication: EPILEPSY
     Dosage: INITIAL DOSE UNKNOWN, INCREASED TO 1000MG/DAY
     Route: 065
  2. LEVETIRACETAM [Suspect]
     Indication: EPILEPSY
     Dosage: INITIAL DOSE UNKNOWN, INCREASED TO 2000MG/DAY
     Route: 065

REACTIONS (3)
  - EXPOSURE DURING BREAST FEEDING [None]
  - MATERNAL EXPOSURE DURING PREGNANCY [None]
  - BRADYCARDIA NEONATAL [None]
